FAERS Safety Report 8776506 (Version 5)
Quarter: 2012Q4

REPORT INFORMATION
  Report Type: 
  Country: JP (occurrence: JP)
  Receive Date: 20120910
  Receipt Date: 20121231
  Transmission Date: 20130627
  Serious: Yes (Death, Other)
  Sender: FDA-Public Use
  Company Number: PHHY2012JP077451

PATIENT
  Sex: Male
  Weight: 55.7 kg

DRUGS (3)
  1. IMATINIB [Suspect]
     Indication: CHRONIC MYELOID LEUKAEMIA
     Dosage: 400 mg, per day
     Route: 048
     Dates: start: 201012, end: 201012
  2. IMATINIB [Suspect]
     Dosage: 200 mg, daily
     Route: 048
  3. IMATINIB [Suspect]
     Dosage: 400 mg, daily
     Route: 048
     Dates: end: 201104

REACTIONS (9)
  - Death [Fatal]
  - Chronic myeloid leukaemia [Unknown]
  - Malignant neoplasm progression [Unknown]
  - Pancytopenia [Recovering/Resolving]
  - Platelet count decreased [Unknown]
  - Red blood cell count decreased [Unknown]
  - White blood cell count decreased [Unknown]
  - Abdominal pain [Recovered/Resolved]
  - Anaemia [Unknown]
